FAERS Safety Report 16702142 (Version 1)
Quarter: 2019Q3

REPORT INFORMATION
  Report Type: Spontaneous
  Country: US (occurrence: US)
  Receive Date: 20190813
  Receipt Date: 20190813
  Transmission Date: 20191004
  Serious: Yes (Hospitalization)
  Sender: FDA-Public Use
  Company Number: None

PATIENT
  Age: 60 Year
  Sex: Male

DRUGS (4)
  1. KETOCONAZOLE, ADVAIR DISKU AEROSOL [Concomitant]
  2. GABAPENTIN, ATORVASTATIN, VENTOLIN HFA [Concomitant]
  3. AZELASTINE. [Concomitant]
     Active Substance: AZELASTINE HYDROCHLORIDE
  4. XELJANZ [Suspect]
     Active Substance: TOFACITINIB CITRATE
     Indication: RHEUMATOID ARTHRITIS
     Route: 048
     Dates: start: 20190320

REACTIONS (2)
  - Hypoaesthesia [None]
  - Therapy cessation [None]

NARRATIVE: CASE EVENT DATE: 20190723
